FAERS Safety Report 23130870 (Version 3)
Quarter: 2023Q4

REPORT INFORMATION
  Report Type: Spontaneous
  Country: JP (occurrence: JP)
  Receive Date: 20231031
  Receipt Date: 20231110
  Transmission Date: 20240110
  Serious: Yes (Other)
  Sender: FDA-Public Use
  Company Number: JP-TAIHO-2023-008975

PATIENT
  Age: 8 Decade
  Sex: Female

DRUGS (2)
  1. ABRAXANE [Suspect]
     Active Substance: PACLITAXEL
     Indication: Pancreatic carcinoma
     Dosage: NI
     Route: 041
  2. GEMCITABINE HYDROCHLORIDE [Suspect]
     Active Substance: GEMCITABINE HYDROCHLORIDE
     Indication: Pancreatic carcinoma
     Dosage: NI

REACTIONS (4)
  - Osteonecrosis [Recovering/Resolving]
  - Diverticulitis [Recovering/Resolving]
  - Diverticular perforation [Recovering/Resolving]
  - Peritonitis [Recovering/Resolving]
